FAERS Safety Report 5192623-X (Version None)
Quarter: 2006Q4

REPORT INFORMATION
  Report Type: 
  Country: None (occurrence: None)
  Receive Date: 20061220
  Receipt Date: 20061208
  Transmission Date: 20070319
  Serious: Yes (Other)
  Sender: FDA-Public Use
  Company Number: 2006088609

PATIENT
  Age: 49 Year
  Sex: Female
  Weight: 56.6996 kg

DRUGS (8)
  1. NEURONTIN [Suspect]
     Indication: BACK PAIN
     Dates: start: 19991001, end: 20040101
  2. NEURONTIN [Suspect]
     Indication: CONVULSION
     Dates: start: 19991001, end: 20040101
  3. NEURONTIN [Suspect]
     Indication: NEURALGIA
     Dates: start: 19991001, end: 20040101
  4. CLONAZEPAM [Concomitant]
  5. METHYLPHENIDATE HCL [Concomitant]
  6. AMBIEN [Concomitant]
  7. OXYCONTIN [Concomitant]
  8. OXYCODONE HCL [Concomitant]

REACTIONS (9)
  - ABDOMINAL INJURY [None]
  - ARTERIAL INJURY [None]
  - BORDERLINE PERSONALITY DISORDER [None]
  - CHEST INJURY [None]
  - DEPRESSION [None]
  - INTENTIONAL OVERDOSE [None]
  - INTENTIONAL SELF-INJURY [None]
  - SUICIDE ATTEMPT [None]
  - WOUND HAEMORRHAGE [None]
